FAERS Safety Report 11310719 (Version 2)
Quarter: 2015Q3

REPORT INFORMATION
  Report Type: Spontaneous
  Country: US (occurrence: US)
  Receive Date: 20150725
  Receipt Date: 20150731
  Transmission Date: 20151125
  Serious: Yes (Congenital Anomaly, Other)
  Sender: FDA-Public Use
  Company Number: US-APOTEX-2015AP008569

PATIENT

DRUGS (3)
  1. PAXIL [Suspect]
     Active Substance: PAROXETINE HYDROCHLORIDE
     Indication: PRODUCT USED FOR UNKNOWN INDICATION
     Route: 064
  2. METHADONE [Concomitant]
     Active Substance: METHADONE HYDROCHLORIDE
     Indication: PRODUCT USED FOR UNKNOWN INDICATION
     Dosage: 10 MG, UNK
     Route: 065
  3. MS CONTIN [Concomitant]
     Active Substance: MORPHINE SULFATE
     Indication: PRODUCT USED FOR UNKNOWN INDICATION
     Dosage: 60 MG, BID
     Route: 065

REACTIONS (16)
  - Hypovolaemia [Recovered/Resolved]
  - Metabolic acidosis [Recovered/Resolved]
  - Anaemia neonatal [Unknown]
  - Drug withdrawal syndrome neonatal [Recovered/Resolved]
  - Bradycardia neonatal [Recovered/Resolved]
  - Apnoea neonatal [Recovered/Resolved]
  - Neonatal respiratory distress syndrome [Recovered/Resolved]
  - Hypoglycaemia [Recovered/Resolved]
  - Retinopathy of prematurity [Unknown]
  - Foetal exposure during pregnancy [Unknown]
  - Ventricular septal defect [Unknown]
  - Atrial septal defect [Unknown]
  - Patent ductus arteriosus [Recovered/Resolved]
  - Hyperbilirubinaemia [Recovered/Resolved]
  - Dyskinesia [Unknown]
  - Abdominal distension [Unknown]
